FAERS Safety Report 5897853-7 (Version None)
Quarter: 2008Q3

REPORT INFORMATION
  Report Type: 
  Country: None (occurrence: None)
  Receive Date: 20080924
  Receipt Date: 20080924
  Transmission Date: 20090109
  Serious: Yes (Other)
  Sender: FDA-Public Use
  Company Number: None

PATIENT
  Age: 58 Year
  Sex: Female
  Weight: 63.5036 kg

DRUGS (2)
  1. LEVAQUIN [Suspect]
     Indication: URINARY TRACT INFECTION
     Dosage: 500 MG ONCE DAILY PO
     Route: 048
     Dates: start: 20080918, end: 20080919
  2. PROQUIN 500 MG [Suspect]
     Indication: URINARY TRACT INFECTION
     Dosage: 500 MG ONCE DAILY OTHER
     Route: 050
     Dates: start: 20080920, end: 20080922

REACTIONS (9)
  - ABNORMAL DREAMS [None]
  - DIZZINESS [None]
  - FEELING ABNORMAL [None]
  - HYPOAESTHESIA [None]
  - INSOMNIA [None]
  - PALPITATIONS [None]
  - PARAESTHESIA [None]
  - TREMOR [None]
  - VISION BLURRED [None]
